FAERS Safety Report 7451058-7 (Version None)
Quarter: 2011Q2

REPORT INFORMATION
  Report Type: 
  Country: None (occurrence: None)
  Receive Date: 20110502
  Receipt Date: 20110420
  Transmission Date: 20111010
  Serious: Yes (Other)
  Sender: FDA-Public Use
  Company Number: DE-ROCHE-771486

PATIENT
  Sex: Female
  Weight: 69 kg

DRUGS (2)
  1. AROMASIN [Concomitant]
     Dosage: INTAKE FOR MORE THAN FIVE YEARS
  2. HERCEPTIN [Suspect]
     Route: 042
     Dates: start: 20100727

REACTIONS (2)
  - CYSTITIS NONINFECTIVE [None]
  - BLOOD URINE PRESENT [None]
